FAERS Safety Report 6945771-5 (Version None)
Quarter: 2010Q3

REPORT INFORMATION
  Report Type: 
  Country: None (occurrence: None)
  Receive Date: 20100827
  Receipt Date: 20100818
  Transmission Date: 20110219
  Serious: Yes (Other)
  Sender: FDA-Public Use
  Company Number: B0663121A

PATIENT
  Sex: Female
  Weight: 75 kg

DRUGS (3)
  1. SERETIDE [Suspect]
     Indication: ASTHMA
     Dosage: 2PUFF TWICE PER DAY
     Route: 055
     Dates: start: 20100605
  2. IPRATROPIUM BROMIDE [Concomitant]
     Dosage: 2PUFF FOUR TIMES PER DAY
     Route: 055
  3. CARBOCISTEINE [Concomitant]
     Route: 048

REACTIONS (2)
  - HALLUCINATION [None]
  - ILLUSION [None]
